FAERS Safety Report 8477561-9 (Version None)
Quarter: 2012Q2

REPORT INFORMATION
  Report Type: 
  Country: None (occurrence: None)
  Receive Date: 20120629
  Receipt Date: 20120627
  Transmission Date: 20120825
  Serious: Yes (Hospitalization, Other)
  Sender: FDA-Public Use
  Company Number: PHFR2012IE001075

PATIENT
  Sex: Male

DRUGS (22)
  1. CLOZARIL [Suspect]
     Dosage: 550 MG (150 MG MANE, 50 MG AT 13:00 HRS AND 350 MG NOCTE))
     Route: 048
  2. LACTULOSE [Concomitant]
     Dosage: 1 DF, BID
     Route: 048
  3. MOVIPREP [Concomitant]
  4. NEILMED [Concomitant]
     Dosage: 1 DF, BID
     Route: 048
  5. ASPIRIN [Concomitant]
     Dosage: 75 MG, UNK
     Route: 048
  6. FYBOGEL ORANGE [Concomitant]
     Dosage: 1 SACHET BD PRN
     Route: 048
  7. CLOZARIL [Suspect]
     Route: 048
     Dates: end: 20120417
  8. CLOZARIL [Suspect]
     Route: 048
     Dates: start: 20120420
  9. VALPROIC ACID [Concomitant]
     Dosage: 1000 MG, NOCTE
     Route: 048
  10. ACETAMINOPHEN [Concomitant]
     Dosage: 1 G, QDS
     Route: 048
  11. KWELLS [Concomitant]
     Route: 048
  12. CRESTOR [Concomitant]
     Dosage: 5 MG, DAILY
     Route: 048
  13. CLOZARIL [Suspect]
     Indication: SCHIZOPHRENIA
     Dosage: UNK UKN, UNK
     Route: 048
     Dates: start: 20050117
  14. CLOZARIL [Suspect]
     Dosage: 325 MG, UNK
     Route: 048
  15. HYOSCINE HYDROBROMIDE [Concomitant]
     Dosage: 300 UG, TID
  16. VALPROIC ACID [Concomitant]
     Dosage: 1500 MG, DAILY
     Route: 048
  17. METOPROLOL SUCCINATE [Concomitant]
     Dosage: 50 MG, BID
     Route: 048
  18. PLAVIX [Concomitant]
     Dosage: 50 MG, UNK
  19. CLARITHROMYCIN [Concomitant]
     Dosage: 500 MG, BID
     Route: 048
  20. AMOXICILLIN AND CLAVULANATE POTASSIUM [Concomitant]
     Dosage: 625 MG, TID
     Route: 048
  21. PLAVIX [Concomitant]
     Dosage: 75 MG, DAILY
     Route: 048
  22. VALPROIC ACID [Concomitant]
     Dosage: 500MG MANE + 100MG NOCTE

REACTIONS (9)
  - PULMONARY VALVE INCOMPETENCE [None]
  - PLATELET COUNT DECREASED [None]
  - ANTIPSYCHOTIC DRUG LEVEL ABOVE THERAPEUTIC [None]
  - CONVULSION [None]
  - FALL [None]
  - CARDIAC DISORDER [None]
  - SINUS TACHYCARDIA [None]
  - PROTHROMBIN TIME PROLONGED [None]
  - SYNCOPE [None]
